FAERS Safety Report 20417974 (Version 3)
Quarter: 2022Q2

REPORT INFORMATION
  Report Type: Spontaneous
  Country: JP (occurrence: JP)
  Receive Date: 20220202
  Receipt Date: 20220429
  Transmission Date: 20220720
  Serious: Yes (Other)
  Sender: FDA-Public Use
  Company Number: JP-ELI_LILLY_AND_COMPANY-JP202110001974AA

PATIENT
  Age: 69 Year
  Sex: Female
  Weight: 45 kg

DRUGS (9)
  1. VERZENIO [Suspect]
     Active Substance: ABEMACICLIB
     Indication: Breast cancer
     Dosage: 150 MG, BID
     Route: 048
     Dates: start: 20200604, end: 20200716
  2. VERZENIO [Suspect]
     Active Substance: ABEMACICLIB
     Dosage: 100 MG, BID
     Route: 048
     Dates: start: 20200903, end: 20201001
  3. VERZENIO [Suspect]
     Active Substance: ABEMACICLIB
     Dosage: 100 MG, BID
     Route: 048
     Dates: start: 20201021, end: 20210603
  4. VERZENIO [Suspect]
     Active Substance: ABEMACICLIB
     Dosage: 100 MG, BID
     Route: 048
     Dates: start: 20210610, end: 20210624
  5. HERBALS [Suspect]
     Active Substance: HERBALS
     Indication: Product used for unknown indication
     Dosage: UNK, UNKNOWN
  6. FULVESTRANT [Concomitant]
     Active Substance: FULVESTRANT
     Indication: Breast cancer
     Dosage: 500 MG, CYCLICAL
     Route: 030
     Dates: start: 20200528, end: 20210715
  7. ZOMETA [Concomitant]
     Active Substance: ZOLEDRONIC ACID
     Dosage: UNK
     Dates: start: 20160530, end: 20200820
  8. BIFIDOBACTERIUM SPP. [Concomitant]
     Active Substance: BIFIDOBACTERIUM SPP.
     Dosage: 1 G, TID
     Route: 048
     Dates: start: 20200604, end: 20210410
  9. LOPERAMIDE [Concomitant]
     Active Substance: LOPERAMIDE
     Dosage: 1 MG, PRN
     Route: 048
     Dates: start: 20200604

REACTIONS (8)
  - Hepatic function abnormal [Recovered/Resolved]
  - Malignant neoplasm progression [Unknown]
  - Oedema [Unknown]
  - Interstitial lung disease [Recovering/Resolving]
  - Leukopenia [Unknown]
  - Neutropenia [Unknown]
  - Leukopenia [Unknown]
  - Neutropenia [Unknown]

NARRATIVE: CASE EVENT DATE: 20200716
